FAERS Safety Report 10094132 (Version 1)
Quarter: 2014Q2

REPORT INFORMATION
  Report Type: Spontaneous
  Country: IT (occurrence: IT)
  Receive Date: 20140422
  Receipt Date: 20140422
  Transmission Date: 20141212
  Serious: Yes (Other)
  Sender: FDA-Public Use
  Company Number: IT-009507513-1404ITA010383

PATIENT
  Age: 49 Year
  Sex: Male
  Weight: 83 kg

DRUGS (3)
  1. REBETOL [Suspect]
     Dosage: UNK
     Route: 048
     Dates: start: 20140331, end: 20140403
  2. PEGINTRON [Suspect]
     Dosage: UNK
     Route: 058
     Dates: start: 20140331, end: 20140403
  3. TELAPREVIR [Suspect]
     Dosage: UNK
     Route: 048
     Dates: start: 20140331, end: 20140403

REACTIONS (1)
  - Erythema [Recovering/Resolving]
